FAERS Safety Report 11939667 (Version 3)
Quarter: 2016Q1

REPORT INFORMATION
  Report Type: Report from Study
  Country: IT (occurrence: IT)
  Receive Date: 20160122
  Receipt Date: 20160208
  Transmission Date: 20160526
  Serious: Yes (Other)
  Sender: FDA-Public Use
  Company Number: IT-TEVA-628347ACC

PATIENT
  Age: 26 Year
  Sex: Male

DRUGS (2)
  1. COPAXONE [Suspect]
     Active Substance: GLATIRAMER ACETATE
     Indication: RELAPSING-REMITTING MULTIPLE SCLEROSIS
     Dosage: 20MG/ML
     Route: 058
     Dates: start: 20151026
  2. PARACETAMOL [Concomitant]
     Active Substance: ACETAMINOPHEN
     Route: 048

REACTIONS (10)
  - Nausea [Recovered/Resolved]
  - Heat stroke [Recovered/Resolved]
  - Chills [Recovered/Resolved]
  - Vasodilatation [Recovered/Resolved]
  - Vertigo [Recovered/Resolved]
  - Dyspnoea [Recovered/Resolved]
  - Nasopharyngitis [Recovered/Resolved]
  - Chest pain [Recovered/Resolved]
  - Erythema [Recovered/Resolved]
  - Vomiting [Recovered/Resolved]

NARRATIVE: CASE EVENT DATE: 20151231
